FAERS Safety Report 14333254 (Version 3)
Quarter: 2018Q2

REPORT INFORMATION
  Report Type: Spontaneous
  Country: CA (occurrence: CA)
  Receive Date: 20171228
  Receipt Date: 20180518
  Transmission Date: 20180711
  Serious: Yes (Hospitalization, Disabling, Other)
  Sender: FDA-Public Use
  Company Number: CA-BAXTER-2017BAX044886

PATIENT
  Age: 33 Year
  Sex: Male
  Weight: 72.3 kg

DRUGS (2)
  1. DIANEAL W/ DEXTROSE 2.5% [Suspect]
     Active Substance: CALCIUM CHLORIDE\DEXTROSE\MAGNESIUM CHLORIDE\SODIUM CHLORIDE\SODIUM LACTATE
     Indication: PERITONEAL DIALYSIS
     Route: 033
     Dates: start: 20170810
  2. DIANEAL W/ DEXTROSE 2.5% [Suspect]
     Active Substance: CALCIUM CHLORIDE\DEXTROSE\MAGNESIUM CHLORIDE\SODIUM CHLORIDE\SODIUM LACTATE
     Indication: PERITONEAL DIALYSIS

REACTIONS (7)
  - Apparent death [Unknown]
  - Bacteriuria [Unknown]
  - Dyspnoea [Unknown]
  - Pneumoperitoneum [Recovering/Resolving]
  - Protein urine present [Unknown]
  - Hypertension [Unknown]
  - Peritonitis [Unknown]

NARRATIVE: CASE EVENT DATE: 20171206
